FAERS Safety Report 15226307 (Version 1)
Quarter: 2018Q3

REPORT INFORMATION
  Report Type: Report from Study
  Country: GR (occurrence: GR)
  Receive Date: 20180801
  Receipt Date: 20180801
  Transmission Date: 20181010
  Serious: Yes (Hospitalization)
  Sender: FDA-Public Use
  Company Number: GR-ROCHE-2153355

PATIENT
  Age: 79 Year
  Sex: Male
  Weight: 74 kg

DRUGS (2)
  1. COBIMETINIB. [Suspect]
     Active Substance: COBIMETINIB
     Indication: MALIGNANT MELANOMA
     Dosage: ON A 21 DAYS ON, 7 DAYS OFF SCHEDULE?DATE OF MOST RECENT DOSE OF COBIMETINIB PRIOR TO AE ONSET: 14/J
     Route: 048
     Dates: start: 20180607
  2. ATEZOLIZUMAB. [Suspect]
     Active Substance: ATEZOLIZUMAB
     Indication: MALIGNANT MELANOMA
     Dosage: DATE OF MOST RECENT DOSE OF ATEZOLIZUMAB PRIOR TO SAE ONSET: 07/JUN/2018
     Route: 042
     Dates: start: 20180607

REACTIONS (1)
  - Angina pectoris [Recovered/Resolved]

NARRATIVE: CASE EVENT DATE: 20180709
